FAERS Safety Report 17013815 (Version 1)
Quarter: 2019Q4

REPORT INFORMATION
  Report Type: Report from Study
  Country: US (occurrence: US)
  Receive Date: 20191111
  Receipt Date: 20191111
  Transmission Date: 20200122
  Serious: Yes (Hospitalization, Other)
  Sender: FDA-Public Use
  Company Number: US-AUROBINDO-AUR-APL-2019-071417

PATIENT
  Age: 1 Month
  Sex: Male

DRUGS (1)
  1. METHADONE [Suspect]
     Active Substance: METHADONE HYDROCHLORIDE
     Indication: PRODUCT USED FOR UNKNOWN INDICATION
     Dosage: UNK
     Route: 063

REACTIONS (9)
  - Lethargy [Unknown]
  - Tremor [Unknown]
  - Agitation [Unknown]
  - Irritability [Unknown]
  - Respiratory arrest [Unknown]
  - Somnolence [Unknown]
  - Diarrhoea [Unknown]
  - Toxicity to various agents [Unknown]
  - Exposure via breast milk [Unknown]
